FAERS Safety Report 5314446-0 (Version None)
Quarter: 2007Q2

REPORT INFORMATION
  Report Type: 
  Country: None (occurrence: None)
  Receive Date: 20070430
  Receipt Date: 20070430
  Transmission Date: 20071010
  Serious: Yes (Other)
  Sender: FDA-Public Use
  Company Number: None

PATIENT
  Sex: Male

DRUGS (1)
  1. ADALIMUMAB [Suspect]
     Dosage: 40MG Q2WEEK SQ
     Route: 058
     Dates: start: 20060501, end: 20060601

REACTIONS (1)
  - B-CELL LYMPHOMA [None]
